FAERS Safety Report 11273602 (Version 1)
Quarter: 2015Q3

REPORT INFORMATION
  Report Type: Spontaneous
  Country: SE (occurrence: SE)
  Receive Date: 20150715
  Receipt Date: 20150715
  Transmission Date: 20151125
  Serious: Yes (Hospitalization)
  Sender: FDA-Public Use
  Company Number: SE-TEVA-578205ISR

PATIENT
  Age: 68 Year
  Sex: Male

DRUGS (8)
  1. SIMVASTATIN. [Suspect]
     Active Substance: SIMVASTATIN
     Route: 065
  2. SEROQUEL [Suspect]
     Active Substance: QUETIAPINE FUMARATE
     Route: 065
  3. NOZINAN [Suspect]
     Active Substance: LEVOMEPROMAZINE
     Route: 065
  4. LOSARTAN. [Suspect]
     Active Substance: LOSARTAN
     Route: 065
  5. DEPAKINE [Suspect]
     Active Substance: VALPROATE SODIUM
     Route: 065
  6. IKTORIVIL [Suspect]
     Active Substance: CLONAZEPAM
     Route: 065
  7. ERGENYL [Suspect]
     Active Substance: VALPROIC ACID
     Route: 065
  8. FURIX RETARD [Suspect]
     Active Substance: FUROSEMIDE
     Route: 065

REACTIONS (3)
  - Toxicity to various agents [Recovered/Resolved]
  - Rhabdomyolysis [Recovered/Resolved]
  - Acute kidney injury [Recovered/Resolved]
